FAERS Safety Report 10601879 (Version 1)
Quarter: 2014Q4

REPORT INFORMATION
  Report Type: Spontaneous
  Country: US (occurrence: None)
  Receive Date: 20141120
  Receipt Date: 20141120
  Transmission Date: 20150529
  Serious: Yes (Other)
  Sender: FDA-Public Use
  Company Number: 2013-US-005073

PATIENT
  Age: 44 Year
  Sex: Female

DRUGS (1)
  1. XYREM [Suspect]
     Active Substance: SODIUM OXYBATE
     Indication: PRODUCT USED FOR UNKNOWN INDICATION
     Dosage: 3 G, BID, ORAL
     Route: 048
     Dates: start: 200505

REACTIONS (2)
  - Lower limb fracture [None]
  - Fall [None]

NARRATIVE: CASE EVENT DATE: 20131224
